FAERS Safety Report 9069044 (Version 1)
Quarter: 2013Q1

REPORT INFORMATION
  Report Type: Spontaneous
  Country: US (occurrence: None)
  Receive Date: 20130213
  Receipt Date: 20130213
  Transmission Date: 20140127
  Serious: Yes (Hospitalization)
  Sender: FDA-Public Use
  Company Number: None

PATIENT
  Sex: Female
  Weight: 115.5 kg

DRUGS (2)
  1. GEMCITABINE HYDROCHLORIDE [Suspect]
  2. OSI-774 (ERLOTINIB; TARCEVA) [Suspect]

REACTIONS (16)
  - Chills [None]
  - Pyrexia [None]
  - Headache [None]
  - Paranasal sinus hypersecretion [None]
  - Cough [None]
  - Abdominal pain lower [None]
  - Diarrhoea [None]
  - Lipase increased [None]
  - Hypokalaemia [None]
  - Bacterial test positive [None]
  - Sinusitis [None]
  - Gait disturbance [None]
  - Fall [None]
  - Cellulitis [None]
  - Refusal of treatment by patient [None]
  - Sepsis [None]
